FAERS Safety Report 22053164 (Version 1)
Quarter: 2023Q1

REPORT INFORMATION
  Report Type: Report from Study
  Country: US (occurrence: US)
  Receive Date: 20230302
  Receipt Date: 20230302
  Transmission Date: 20230418
  Serious: Yes (Other)
  Sender: FDA-Public Use
  Company Number: US-SA-SAC20230228001382

PATIENT
  Age: 72 Year
  Sex: Female

DRUGS (17)
  1. BELUMOSUDIL MESYLATE [Suspect]
     Active Substance: BELUMOSUDIL MESYLATE
     Indication: Graft versus host disease
     Dosage: 200 MG, 1X
     Route: 048
     Dates: start: 20230209
  2. ELIQUIS [Concomitant]
     Active Substance: APIXABAN
     Dosage: 5MG, BID
  3. VITAMIN D3 [Concomitant]
     Active Substance: CHOLECALCIFEROL
     Dosage: 1.25MG, WEEKLY
  4. BACTRIM DS [Concomitant]
     Active Substance: SULFAMETHOXAZOLE\TRIMETHOPRIM
     Dosage: 800-160MG, QD
  5. ICLUSIG [Concomitant]
     Active Substance: PONATINIB
     Dosage: 15MG, QD
  6. OSCAL [CALCIUM CARBONATE] [Concomitant]
     Dosage: BID
  7. ZOFRAN [Concomitant]
     Active Substance: ONDANSETRON HYDROCHLORIDE
     Dosage: 4MG,PRN
  8. FLUCONAZOLE [Concomitant]
     Active Substance: FLUCONAZOLE
     Dosage: 200MG, QD
  9. PREVYMIS [Concomitant]
     Active Substance: LETERMOVIR
     Dosage: 480MG,QD
  10. SYNTHROID [Concomitant]
     Active Substance: LEVOTHYROXINE SODIUM
     Dosage: 75MCG, QD
  11. RESTASIS [Concomitant]
     Active Substance: CYCLOSPORINE
     Dosage: 0.05%, BID
  12. BUDESONIDE [Concomitant]
     Active Substance: BUDESONIDE
     Dosage: 3 CAPS, QD
  13. VALTREX [Concomitant]
     Active Substance: VALACYCLOVIR HYDROCHLORIDE
     Dosage: 500MG, BID
  14. PEPCID [Concomitant]
     Active Substance: FAMOTIDINE
     Dosage: 20MG, BID
  15. EZETIMIBE [Concomitant]
     Active Substance: EZETIMIBE
     Dosage: 10MG, QD
  16. LASIX [Concomitant]
     Active Substance: FUROSEMIDE
     Dosage: UNK
  17. MEDROL [Concomitant]
     Active Substance: METHYLPREDNISOLONE
     Dosage: UNK

REACTIONS (6)
  - Chronic graft versus host disease oral [Not Recovered/Not Resolved]
  - Chronic graft versus host disease in eye [Not Recovered/Not Resolved]
  - Chronic graft versus host disease [Not Recovered/Not Resolved]
  - Chronic graft versus host disease [Not Recovered/Not Resolved]
  - Fatigue [Not Recovered/Not Resolved]
  - Nausea [Not Recovered/Not Resolved]
